FAERS Safety Report 25973404 (Version 2)
Quarter: 2025Q4

REPORT INFORMATION
  Report Type: Spontaneous
  Country: US (occurrence: US)
  Receive Date: 20251029
  Receipt Date: 20251114
  Transmission Date: 20260118
  Serious: No
  Sender: ROCHE
  Company Number: US-ROCHE-10000409885

PATIENT
  Age: 50 Year
  Sex: Male
  Weight: 91.63 kg

DRUGS (2)
  1. XOLAIR PFS [Suspect]
     Active Substance: OMALIZUMAB
     Indication: Urticaria
     Dosage: INJECT THE CONTENTS OF 1 DEVICE UNDER THE SKIN EVERY 4 WEEKS (TOTAL: 300MG EVERY 4 WEEKS)
     Route: 058
  2. XOLAIR PFS [Suspect]
     Active Substance: OMALIZUMAB
     Indication: Drug hypersensitivity

REACTIONS (6)
  - Syringe issue [Unknown]
  - Exposure via skin contact [Unknown]
  - Off label use [Unknown]
  - Product dose omission issue [Unknown]
  - Device issue [Unknown]
  - No adverse event [Unknown]

NARRATIVE: CASE EVENT DATE: 20251012
